FAERS Safety Report 9281255 (Version 2)
Quarter: 2013Q2

REPORT INFORMATION
  Report Type: Spontaneous
  Country: DK (occurrence: DK)
  Receive Date: 20130509
  Receipt Date: 20130519
  Transmission Date: 20140414
  Serious: Yes (Death, Hospitalization)
  Sender: FDA-Public Use
  Company Number: DK-TEVA-402483ISR

PATIENT
  Age: 76 Year
  Sex: 0

DRUGS (4)
  1. BLEOMYCIN [Suspect]
     Indication: HODGKIN^S DISEASE
  2. DOXORUBICIN NOS [Suspect]
     Indication: HODGKIN^S DISEASE
  3. DACARBAZINE [Suspect]
     Indication: HODGKIN^S DISEASE
  4. VINBLASTINE [Suspect]
     Indication: HODGKIN^S DISEASE

REACTIONS (1)
  - Clostridium difficile colitis [Fatal]
